FAERS Safety Report 8136310-4 (Version None)
Quarter: 2012Q1

REPORT INFORMATION
  Report Type: 
  Country: None (occurrence: None)
  Receive Date: 20120214
  Receipt Date: 20120207
  Transmission Date: 20120608
  Serious: Yes (Hospitalization, Other)
  Sender: FDA-Public Use
  Company Number: US-ROXANE LABORATORIES, INC.-2012-RO-00615RO

PATIENT
  Sex: Male

DRUGS (9)
  1. LORAZEPAM [Suspect]
     Route: 048
  2. WARFARIN SODIUM [Suspect]
     Dosage: 5 MG
     Route: 048
  3. SERTRALINE HYDROCHLORIDE [Suspect]
     Dosage: 50 MG
     Route: 048
  4. DIGOXIN [Suspect]
     Dosage: 0.125 MG
     Route: 048
  5. POTASSIUM CHLORIDE [Suspect]
     Dosage: 40 MEQ
     Route: 048
  6. WARFARIN SODIUM [Suspect]
     Indication: ANTICOAGULANT THERAPY
     Dosage: 4 MG
     Route: 048
  7. ACETAMINOPHEN [Suspect]
     Route: 048
  8. FUROSEMIDE [Suspect]
     Dosage: 80 MG
     Route: 048
  9. ALCOHOL [Suspect]
     Route: 048

REACTIONS (4)
  - FALL [None]
  - CONDITION AGGRAVATED [None]
  - SUBDURAL HAEMATOMA [None]
  - ANTICOAGULATION DRUG LEVEL BELOW THERAPEUTIC [None]
